FAERS Safety Report 16850157 (Version 1)
Quarter: 2019Q4

REPORT INFORMATION
  Report Type: Spontaneous
  Country: US (occurrence: US)
  Receive Date: 20190925
  Receipt Date: 20190925
  Transmission Date: 20200122
  Serious: Yes (Hospitalization)
  Sender: FDA-Public Use
  Company Number: None

PATIENT
  Age: 64 Year
  Sex: Female

DRUGS (29)
  1. LANTUS [Concomitant]
     Active Substance: INSULIN GLARGINE
  2. ASPIRIN LOW DOSE [Concomitant]
     Active Substance: ASPIRIN
  3. CIPRO [Concomitant]
     Active Substance: CIPROFLOXACIN HYDROCHLORIDE
  4. PROTONIX [Concomitant]
     Active Substance: PANTOPRAZOLE SODIUM
  5. OCTREOTIDE. [Suspect]
     Active Substance: OCTREOTIDE
     Indication: PANCREATITIS ACUTE
     Route: 058
     Dates: start: 20181212
  6. LISINOPRIL. [Concomitant]
     Active Substance: LISINOPRIL
  7. VITAMIN C [Concomitant]
     Active Substance: ASCORBIC ACID
  8. VITAMIN B12 [Concomitant]
     Active Substance: CYANOCOBALAMIN
  9. WARFARIN [Concomitant]
     Active Substance: WARFARIN
  10. LASIX [Concomitant]
     Active Substance: FUROSEMIDE
  11. CENTRUM [Concomitant]
     Active Substance: VITAMINS
  12. ALLOPURINOL. [Concomitant]
     Active Substance: ALLOPURINOL
  13. OCTREOTIDE. [Suspect]
     Active Substance: OCTREOTIDE
     Indication: OSTEONECROSIS
     Route: 058
     Dates: start: 20181212
  14. HYDROCODONE [Concomitant]
     Active Substance: HYDROCODONE
  15. IRON [Concomitant]
     Active Substance: IRON
  16. XANAX [Concomitant]
     Active Substance: ALPRAZOLAM
  17. AUGMENTIN [Concomitant]
     Active Substance: AMOXICILLIN\CLAVULANATE POTASSIUM
  18. ALDACTONE [Concomitant]
     Active Substance: SPIRONOLACTONE
  19. INSULIN [Concomitant]
     Active Substance: INSULIN NOS
  20. LOTRISONE [Concomitant]
     Active Substance: BETAMETHASONE DIPROPIONATE\CLOTRIMAZOLE
  21. PAXIL [Concomitant]
     Active Substance: PAROXETINE HYDROCHLORIDE
  22. PRAVASTATIN. [Concomitant]
     Active Substance: PRAVASTATIN
  23. FOLIC ACID. [Concomitant]
     Active Substance: FOLIC ACID
  24. CALCIUM [Concomitant]
     Active Substance: CALCIUM
  25. TRIAMCINOLONE [Concomitant]
     Active Substance: TRIAMCINOLONE
  26. EXEMESTANE. [Concomitant]
     Active Substance: EXEMESTANE
  27. OMEGA 3 [Concomitant]
     Active Substance: OMEGA-3 FATTY ACIDS
  28. FELDENE [Concomitant]
     Active Substance: PIROXICAM
  29. LAMICTAL [Concomitant]
     Active Substance: LAMOTRIGINE

REACTIONS (2)
  - Infection [None]
  - Hip arthroplasty [None]

NARRATIVE: CASE EVENT DATE: 20190827
